FAERS Safety Report 4997847-X (Version None)
Quarter: 2006Q2

REPORT INFORMATION
  Report Type: 
  Country: None (occurrence: None)
  Receive Date: 20060505
  Receipt Date: 20060505
  Transmission Date: 20061013
  Serious: Yes (Other)
  Sender: FDA-Public Use
  Company Number: None

PATIENT
  Sex: Male
  Weight: 64.4108 kg

DRUGS (1)
  1. MEDROXYPROGESTERONE [Suspect]
     Indication: CONTRACEPTION
     Dosage: 150 MCG IM
     Route: 030
     Dates: start: 20060405

REACTIONS (2)
  - PREGNANCY TEST POSITIVE [None]
  - PREGNANCY WITH INJECTABLE CONTRACEPTIVE [None]
